FAERS Safety Report 8896227 (Version 2)
Quarter: 2013Q1

REPORT INFORMATION
  Report Type: Spontaneous
  Country: JP (occurrence: JP)
  Receive Date: 20121108
  Receipt Date: 20130122
  Transmission Date: 20140127
  Serious: No
  Sender: FDA-Public Use
  Company Number: JP-UCBSA-070354

PATIENT
  Age: 34 Year
  Sex: Male

DRUGS (3)
  1. E KEPPRA [Suspect]
     Route: 048
     Dates: start: 20120715
  2. RINDERON [Concomitant]
     Dosage: DAILY DOSE: 1 MG
     Route: 048
  3. SELENICA-R [Concomitant]
     Dosage: DAILY DOSE: 800 MG
     Route: 048

REACTIONS (1)
  - Thrombocytopenia [Recovered/Resolved]
